FAERS Safety Report 7576624-X (Version None)
Quarter: 2011Q2

REPORT INFORMATION
  Report Type: 
  Country: None (occurrence: None)
  Receive Date: 20110628
  Receipt Date: 20110621
  Transmission Date: 20111010
  Serious: Yes (Other)
  Sender: FDA-Public Use
  Company Number: GB-ELI_LILLY_AND_COMPANY-GB201102000835

PATIENT
  Sex: Male
  Weight: 111.3 kg

DRUGS (15)
  1. CARVEDILOL [Concomitant]
     Dosage: UNK
  2. CLOPIDOGREL [Concomitant]
     Dosage: UNK
  3. HUMULIN 70/30 [Suspect]
     Dosage: 10 U, EACH EVENING
     Route: 058
     Dates: start: 20110118, end: 20110118
  4. BUMETANIDE [Concomitant]
     Dosage: UNK
  5. MONOMAX [Concomitant]
     Dosage: UNK
  6. TIOTROPIUM [Concomitant]
     Dosage: UNK
  7. HUMULIN 70/30 [Suspect]
     Dosage: 20 U, EACH MORNING
     Route: 058
     Dates: start: 20110118, end: 20110118
  8. LORATADINE [Concomitant]
     Dosage: UNK
  9. LANSOPRAZOL [Concomitant]
     Dosage: UNK
  10. SPIRONOLACTONE [Concomitant]
     Dosage: UNK
  11. DIGOXIN [Concomitant]
     Dosage: UNK
  12. TRANDOLAPRIL [Concomitant]
     Dosage: UNK
  13. SERETIDE [Concomitant]
     Dosage: UNK
  14. ATORVASTATIN [Concomitant]
     Dosage: UNK
  15. ACETAMINOPHEN [Concomitant]

REACTIONS (2)
  - HYPERSENSITIVITY [None]
  - VISUAL IMPAIRMENT [None]
